FAERS Safety Report 5441698-9 (Version None)
Quarter: 2007Q3

REPORT INFORMATION
  Report Type: 
  Country: None (occurrence: None)
  Receive Date: 20070829
  Receipt Date: 20070802
  Transmission Date: 20080115
  Serious: Yes (Death, Life-Threatening, Hospitalization)
  Sender: FDA-Public Use
  Company Number: 6036628

PATIENT
  Sex: Female

DRUGS (1)
  1. DICLOFENAC (DICLOFENAC) [Suspect]
     Indication: BACK PAIN
     Dosage: 100 MG (50 MG, 2 IN 1 D)
     Route: 048
     Dates: start: 20070625, end: 20070709

REACTIONS (1)
  - GASTRIC ULCER PERFORATION [None]
